FAERS Safety Report 5064321-4 (Version None)
Quarter: 2006Q3

REPORT INFORMATION
  Report Type: 
  Country: None (occurrence: None)
  Receive Date: 20060725
  Receipt Date: 20060712
  Transmission Date: 20061208
  Serious: Yes (Hospitalization)
  Sender: FDA-Public Use
  Company Number: US-2006-003316

PATIENT
  Age: 65 Year
  Sex: Male
  Weight: 101 kg

DRUGS (8)
  1. BETASERON [Suspect]
     Indication: SECONDARY PROGRESSIVE MULTIPLE SCLEROSIS
     Dosage: 8 MIU, EVERY 2D, SUBCUTANEOUS
     Route: 058
     Dates: start: 20031118
  2. LOPRESSOR [Concomitant]
  3. IMDUR [Concomitant]
  4. PLAVIX [Concomitant]
  5. FLOMAX [Concomitant]
  6. BABYPRIN (ACETYLSALICYLIC ACID) [Concomitant]
  7. BACLOFEN [Concomitant]
  8. PAXIL [Concomitant]

REACTIONS (7)
  - ABDOMINAL DISTENSION [None]
  - ANGINA UNSTABLE [None]
  - ARTERIOSCLEROSIS CORONARY ARTERY [None]
  - CORONARY ARTERY DISEASE [None]
  - CORONARY ARTERY OCCLUSION [None]
  - MYOCARDIAL INFARCTION [None]
  - WEIGHT INCREASED [None]
